FAERS Safety Report 9283187 (Version 1)
Quarter: 2013Q2

REPORT INFORMATION
  Report Type: Spontaneous
  Country: US (occurrence: US)
  Receive Date: 20130510
  Receipt Date: 20130510
  Transmission Date: 20140414
  Serious: No
  Sender: FDA-Public Use
  Company Number: US-GLAXOSMITHKLINE-A0987003A

PATIENT
  Age: 58 Year
  Sex: Female
  Weight: 56.4 kg

DRUGS (8)
  1. TYKERB [Suspect]
     Indication: PRODUCT USED FOR UNKNOWN INDICATION
     Dosage: 1250MG PER DAY
     Route: 048
  2. ALENDRONATE [Concomitant]
  3. BOOST [Concomitant]
  4. HYDROCODONE + ACETAMINOPHEN [Concomitant]
  5. BYSTOLIC [Concomitant]
  6. LEXAPRO [Concomitant]
  7. VITAMIN D [Concomitant]
  8. BENICAR [Concomitant]

REACTIONS (1)
  - Fatigue [Unknown]
